FAERS Safety Report 8034449-5 (Version None)
Quarter: 2012Q1

REPORT INFORMATION
  Report Type: 
  Country: None (occurrence: None)
  Receive Date: 20120110
  Receipt Date: 20120109
  Transmission Date: 20120608
  Serious: Yes (Other)
  Sender: FDA-Public Use
  Company Number: SE-AMGEN-SWESP2011068018

PATIENT
  Age: 61 Year
  Sex: Male

DRUGS (2)
  1. MABTHERA [Suspect]
     Indication: LYMPHOMA
     Dosage: UNK
     Dates: start: 20111201
  2. NPLATE [Suspect]
     Indication: IDIOPATHIC THROMBOCYTOPENIC PURPURA
     Dosage: 85 MUG/ML, QWK
     Dates: start: 20110901, end: 20111201

REACTIONS (2)
  - VENOUS THROMBOSIS LIMB [None]
  - PLATELET COUNT ABNORMAL [None]
